FAERS Safety Report 14123326 (Version 4)
Quarter: 2018Q3

REPORT INFORMATION
  Report Type: Spontaneous
  Country: US (occurrence: US)
  Receive Date: 20171025
  Receipt Date: 20180724
  Transmission Date: 20181010
  Serious: Yes (Other)
  Sender: FDA-Public Use
  Company Number: US-ASTRAZENECA-2017SF06998

PATIENT
  Age: 24365 Day
  Sex: Female
  Weight: 64.9 kg

DRUGS (18)
  1. TOPROL XL [Suspect]
     Active Substance: METOPROLOL SUCCINATE
     Indication: HYPERTENSION
     Route: 048
     Dates: start: 1996
  2. ASPIRIN. [Concomitant]
     Active Substance: ASPIRIN
     Route: 048
     Dates: start: 1996
  3. LOSARTAN. [Concomitant]
     Active Substance: LOSARTAN
     Indication: BLOOD PRESSURE ABNORMAL
     Route: 048
  4. LIPITOR [Concomitant]
     Active Substance: ATORVASTATIN CALCIUM
     Dosage: 80.0MG UNKNOWN
  5. BRILINTA [Suspect]
     Active Substance: TICAGRELOR
     Indication: MYOCARDIAL INFARCTION
     Route: 048
     Dates: start: 20170717
  6. BRILINTA [Suspect]
     Active Substance: TICAGRELOR
     Indication: STENT PLACEMENT
     Route: 048
     Dates: start: 20170717
  7. ASPIRIN. [Concomitant]
     Active Substance: ASPIRIN
     Dosage: 20.0MG UNKNOWN
     Route: 048
  8. RANITIDINE. [Concomitant]
     Active Substance: RANITIDINE
     Indication: DYSPEPSIA
     Route: 048
  9. TOPROL XL [Suspect]
     Active Substance: METOPROLOL SUCCINATE
     Indication: CARDIAC DISORDER
     Route: 048
     Dates: start: 1996
  10. ZETIA [Concomitant]
     Active Substance: EZETIMIBE
     Indication: BLOOD CHOLESTEROL ABNORMAL
     Route: 048
  11. TRICOR [Concomitant]
     Active Substance: FENOFIBRATE
     Dosage: 48.0MG UNKNOWN
  12. RANITIDINE. [Concomitant]
     Active Substance: RANITIDINE
     Indication: PAIN
     Route: 048
  13. VITAMIN B COMPLEX [Concomitant]
     Active Substance: CYANOCOBALAMIN\DEXPANTHENOL\NIACINAMIDE\PYRIDOXINE HYDROCHLORIDE\RIBOFLAVIN 5^-PHOSPHATE SODIUM\THIAMINE HYDROCHLORIDE\VITAMIN B COMPLEX
     Dosage: DAILY FOR 4 TO 5 YEARS
  14. FUROSEMIDE. [Concomitant]
     Active Substance: FUROSEMIDE
     Indication: FLUID RETENTION
     Route: 048
     Dates: start: 2017
  15. MECLIZINE [Concomitant]
     Active Substance: MECLIZINE HYDROCHLORIDE
     Indication: DIZZINESS
     Route: 048
     Dates: start: 20070126
  16. MULTIVITAMIN [Concomitant]
     Active Substance: VITAMINS
  17. PREDNISONE. [Suspect]
     Active Substance: PREDNISONE
     Dosage: 5.0MG UNKNOWN
     Route: 048
     Dates: start: 2014
  18. ACIPHEX [Concomitant]
     Active Substance: RABEPRAZOLE SODIUM
     Dosage: 20.0MG UNKNOWN

REACTIONS (23)
  - Vitamin B complex deficiency [Unknown]
  - Muscle spasms [Recovered/Resolved]
  - Memory impairment [Unknown]
  - Epistaxis [Unknown]
  - Diarrhoea [Not Recovered/Not Resolved]
  - Loss of personal independence in daily activities [Unknown]
  - Eating disorder [Unknown]
  - Scoliosis [Unknown]
  - Bronchitis [Unknown]
  - Alopecia [Unknown]
  - Amnesia [Unknown]
  - Myocardial infarction [Unknown]
  - Vitamin D deficiency [Unknown]
  - Vitamin C deficiency [Unknown]
  - Tooth fracture [Recovered/Resolved]
  - Chondrocalcinosis pyrophosphate [Unknown]
  - Dizziness [Unknown]
  - Body height decreased [Unknown]
  - Bone disorder [Unknown]
  - Drug hypersensitivity [Unknown]
  - Choking [Unknown]
  - Bone density abnormal [Unknown]
  - Contusion [Unknown]

NARRATIVE: CASE EVENT DATE: 20001128
